FAERS Safety Report 4411746-3 (Version None)
Quarter: 2004Q3

REPORT INFORMATION
  Report Type: 
  Country: None (occurrence: None)
  Receive Date: 20040729
  Receipt Date: 20040729
  Transmission Date: 20050211
  Serious: No
  Sender: FDA-Public Use
  Company Number: None

PATIENT
  Age: 17 Year
  Sex: Female
  Weight: 99.3377 kg

DRUGS (1)
  1. TOPAMAX [Suspect]
     Indication: MAJOR DEPRESSION
     Dosage: 100 MG  HS
     Dates: start: 20040422, end: 20040728

REACTIONS (2)
  - ELECTROLYTE IMBALANCE [None]
  - METABOLIC ACIDOSIS [None]
